FAERS Safety Report 24542410 (Version 1)
Quarter: 2024Q4

REPORT INFORMATION
  Report Type: Report from Study
  Country: US (occurrence: US)
  Receive Date: 20241024
  Receipt Date: 20241024
  Transmission Date: 20250115
  Serious: Yes (Other)
  Sender: ABBVIE
  Company Number: US-ABBVIE-5974078

PATIENT
  Age: 51 Year
  Sex: Male

DRUGS (1)
  1. RINVOQ [Suspect]
     Active Substance: UPADACITINIB
     Indication: Rheumatoid arthritis
     Route: 048
     Dates: start: 20241004, end: 20241016

REACTIONS (3)
  - Foot deformity [Recovering/Resolving]
  - Pruritus [Recovered/Resolved]
  - Ankle deformity [Recovering/Resolving]

NARRATIVE: CASE EVENT DATE: 20241014
